FAERS Safety Report 6333447-7 (Version None)
Quarter: 2009Q3

REPORT INFORMATION
  Report Type: 
  Country: None (occurrence: None)
  Receive Date: 20090828
  Receipt Date: 20090820
  Transmission Date: 20100115
  Serious: Yes (Other)
  Sender: FDA-Public Use
  Company Number: PHHY2009JP22165

PATIENT
  Sex: Male

DRUGS (12)
  1. GLEEVEC [Suspect]
     Indication: CHRONIC MYELOID LEUKAEMIA
     Dosage: 200 MG DAILY
     Route: 048
     Dates: start: 20071017, end: 20071023
  2. GLEEVEC [Suspect]
     Dosage: 300 MG DAILY
     Route: 048
     Dates: start: 20071024, end: 20080817
  3. GLEEVEC [Suspect]
     Dosage: 400 MG DAILY
     Route: 048
     Dates: start: 20080818, end: 20090216
  4. GLEEVEC [Suspect]
     Dosage: 300 MG DAILY
     Route: 048
     Dates: start: 20090323
  5. PREDONINE [Suspect]
     Indication: NEPHRITIS
     Dosage: 5 MG
     Route: 048
  6. GASTER D [Concomitant]
     Indication: PROPHYLAXIS AGAINST GASTROINTESTINAL ULCER
     Route: 048
  7. MEVALOTIN [Concomitant]
     Route: 048
  8. SELBEX [Concomitant]
     Indication: PROPHYLAXIS AGAINST GASTROINTESTINAL ULCER
     Route: 048
  9. GLAKAY [Concomitant]
     Indication: OSTEOPOROSIS
     Route: 048
  10. CALTAN [Concomitant]
     Indication: GLOMERULONEPHRITIS CHRONIC
     Route: 048
  11. ALFAROL [Concomitant]
     Indication: OSTEOPOROSIS
     Route: 048
  12. BREDININ [Concomitant]
     Indication: NEPHRITIS
     Route: 048

REACTIONS (5)
  - BONE DISORDER [None]
  - ORAL MUCOSAL EXFOLIATION [None]
  - OSTEONECROSIS [None]
  - SEQUESTRECTOMY [None]
  - TOOTHACHE [None]
